FAERS Safety Report 7731201-2 (Version None)
Quarter: 2011Q3

REPORT INFORMATION
  Report Type: 
  Country: None (occurrence: None)
  Receive Date: 20110906
  Receipt Date: 20110826
  Transmission Date: 20111222
  Serious: Yes (Hospitalization)
  Sender: FDA-Public Use
  Company Number: DE-ASTRAZENECA-2011SE51505

PATIENT
  Age: 28215 Day
  Sex: Female
  Weight: 73 kg

DRUGS (15)
  1. LEVOTHYROXINE SODIUM [Concomitant]
     Indication: HYPOTHYROIDISM
     Route: 048
  2. FUCIDERM [Concomitant]
     Indication: ECZEMA
     Dosage: AS REQUIRED
     Route: 061
     Dates: start: 20110314
  3. DIGIMERCK [Concomitant]
     Indication: CARDIAC FAILURE
     Route: 048
     Dates: start: 20110206
  4. BISOPROLOL FUMARATE [Concomitant]
     Indication: HYPERTENSION
     Route: 048
  5. HYDROCHLOROTHIAZIDE [Concomitant]
     Indication: HYPERTENSION
     Route: 048
     Dates: start: 20110224
  6. LERCANIDIPINE [Concomitant]
     Indication: HYPERTENSION
     Route: 048
  7. IBUPROFEN [Concomitant]
     Indication: PAIN
     Route: 048
     Dates: start: 20100820
  8. ASA PROTECT [Concomitant]
     Indication: HEART RATE ABNORMAL
     Route: 048
     Dates: start: 20110204
  9. GEFITINIB [Suspect]
     Indication: NON-SMALL CELL LUNG CANCER
     Route: 048
     Dates: start: 20100821
  10. OLMESARTAN MEDOXOMIL [Concomitant]
     Indication: HYPERTENSION
     Route: 048
  11. LYRICA [Concomitant]
     Indication: NEURALGIA
     Route: 048
     Dates: start: 20101019
  12. FUROSEMIDE [Concomitant]
     Indication: HYPERTENSION
     Route: 048
     Dates: start: 20100820
  13. PANTOPRAZOLE [Concomitant]
     Indication: GASTRIC DISORDER
     Route: 048
  14. SPIRONOLACTONE [Concomitant]
     Indication: HYPERTENSION
     Route: 048
     Dates: start: 20100820
  15. ICHTODERM [Concomitant]
     Indication: ECZEMA
     Dosage: AS REQUIRED
     Route: 061
     Dates: start: 20110727

REACTIONS (1)
  - UTERINE HAEMORRHAGE [None]
